FAERS Safety Report 5449687-5 (Version None)
Quarter: 2007Q3

REPORT INFORMATION
  Report Type: 
  Country: None (occurrence: None)
  Receive Date: 20070910
  Receipt Date: 20070910
  Transmission Date: 20080115
  Serious: Yes (Other)
  Sender: FDA-Public Use
  Company Number: None

PATIENT
  Sex: Female
  Weight: 78.0187 kg

DRUGS (3)
  1. METOPROLOL SUCCINATE [Suspect]
     Indication: ARRHYTHMIA
     Dosage: 100 MG DAILY ORAL
     Route: 048
     Dates: start: 20070901, end: 20070906
  2. METOPROLOL SUCCINATE [Suspect]
     Indication: SUPRAVENTRICULAR EXTRASYSTOLES
     Dosage: 100 MG DAILY ORAL
     Route: 048
     Dates: start: 20070901, end: 20070906
  3. METOPROLOL SUCCINATE [Suspect]
     Indication: VENTRICULAR EXTRASYSTOLES
     Dosage: 100 MG DAILY ORAL
     Route: 048
     Dates: start: 20070901, end: 20070906

REACTIONS (7)
  - ASTHMA [None]
  - CHEST DISCOMFORT [None]
  - FATIGUE [None]
  - HEADACHE [None]
  - HYPERHIDROSIS [None]
  - PAIN [None]
  - PALPITATIONS [None]
